FAERS Safety Report 23289363 (Version 1)
Quarter: 2023Q4

REPORT INFORMATION
  Report Type: Spontaneous
  Country: US (occurrence: None)
  Receive Date: 20231211
  Receipt Date: 20231211
  Transmission Date: 20240109
  Serious: Yes (Death, Life-Threatening, Hospitalization, Disabling, Other)
  Sender: FDA-Public Use
  Company Number: None

PATIENT
  Age: 81 Year
  Sex: Female
  Weight: 54.45 kg

DRUGS (2)
  1. PEMBROLIZUMAB [Suspect]
     Active Substance: PEMBROLIZUMAB
     Indication: Breast cancer metastatic
     Dates: start: 20230606, end: 20231128
  2. ABRAXANE [Suspect]
     Active Substance: PACLITAXEL

REACTIONS (7)
  - Skin toxicity [None]
  - Pulseless electrical activity [None]
  - Dermatitis [None]
  - Erythema multiforme [None]
  - Toxic epidermal necrolysis [None]
  - Stevens-Johnson syndrome [None]
  - Fixed eruption [None]

NARRATIVE: CASE EVENT DATE: 20231206
